FAERS Safety Report 10176467 (Version 1)
Quarter: 2014Q2

REPORT INFORMATION
  Report Type: Spontaneous
  Country: US (occurrence: None)
  Receive Date: 20140515
  Receipt Date: 20140515
  Transmission Date: 20141212
  Serious: Yes (Disabling)
  Sender: FDA-Public Use
  Company Number: None

PATIENT
  Age: 38 Year
  Sex: Female
  Weight: 83.92 kg

DRUGS (1)
  1. LUPRON [Suspect]

REACTIONS (10)
  - Fatigue [None]
  - Bone pain [None]
  - Myalgia [None]
  - Arthralgia [None]
  - Impaired work ability [None]
  - Alopecia [None]
  - Amnesia [None]
  - Memory impairment [None]
  - Unevaluable event [None]
  - Drug ineffective [None]
